FAERS Safety Report 4510706-1 (Version None)
Quarter: 2004Q4

REPORT INFORMATION
  Report Type: 
  Country: None (occurrence: None)
  Receive Date: 20041122
  Receipt Date: 20041108
  Transmission Date: 20050328
  Serious: Yes (Disabling, Other)
  Sender: FDA-Public Use
  Company Number: 2004092974

PATIENT
  Sex: Male
  Weight: 94 kg

DRUGS (4)
  1. SOMAVERT [Suspect]
     Indication: ACROMEGALY
     Dosage: 10 MG (DAILY), SUBCUTANEOUS
     Route: 058
     Dates: start: 20040413
  2. TESTOSTERONE [Concomitant]
  3. CABERGOLINE [Concomitant]
  4. LEVOTHYROXINE SODIUM [Concomitant]

REACTIONS (1)
  - NEOPLASM [None]
